FAERS Safety Report 17094961 (Version 1)
Quarter: 2019Q4

REPORT INFORMATION
  Report Type: Spontaneous
  Country: US (occurrence: US)
  Receive Date: 20191104
  Receipt Date: 20191104
  Transmission Date: 20200122
  Serious: Yes (Hospitalization)
  Sender: FDA-Public Use
  Company Number: None

PATIENT
  Age: 69 Year
  Sex: Female

DRUGS (16)
  1. STELARA [Suspect]
     Active Substance: USTEKINUMAB
     Indication: PSORIATIC ARTHROPATHY
     Dosage: ?          OTHER FREQUENCY:1 X EVERY 3 MONTHS;?
     Route: 058
     Dates: start: 20181024
  2. METHOTREXATE. [Concomitant]
     Active Substance: METHOTREXATE
  3. CRESTOR [Concomitant]
     Active Substance: ROSUVASTATIN CALCIUM
  4. PLAVIZ [Concomitant]
  5. LOSARTAN POT [Concomitant]
     Active Substance: LOSARTAN POTASSIUM
  6. BACLOFEN. [Concomitant]
     Active Substance: BACLOFEN
  7. IRON [Concomitant]
     Active Substance: IRON
  8. MYRBETRIQ [Concomitant]
     Active Substance: MIRABEGRON
  9. THIAMINE HCL [Concomitant]
     Active Substance: THIAMINE HYDROCHLORIDE
  10. ENBREL [Concomitant]
     Active Substance: ETANERCEPT
  11. DIOVAN [Concomitant]
     Active Substance: VALSARTAN
  12. NORVASC [Concomitant]
     Active Substance: AMLODIPINE BESYLATE
  13. LEXAPRO [Concomitant]
     Active Substance: ESCITALOPRAM OXALATE
  14. ASPIRIN. [Concomitant]
     Active Substance: ASPIRIN
  15. PANTOPRAZOLE [Concomitant]
     Active Substance: PANTOPRAZOLE
  16. VITAMIN C [Concomitant]
     Active Substance: ASCORBIC ACID

REACTIONS (4)
  - Cerebrovascular accident [None]
  - Eye pruritus [None]
  - Seizure [None]
  - Fracture [None]

NARRATIVE: CASE EVENT DATE: 20191031
